FAERS Safety Report 10183923 (Version 1)
Quarter: 2014Q2

REPORT INFORMATION
  Report Type: Spontaneous
  Country: CH (occurrence: CH)
  Receive Date: 20140520
  Receipt Date: 20140520
  Transmission Date: 20141212
  Serious: Yes (Hospitalization)
  Sender: FDA-Public Use
  Company Number: CH-TEVA-481646ISR

PATIENT
  Age: 83 Year
  Sex: Female

DRUGS (6)
  1. INFLAMAC [Suspect]
     Dosage: 150 MILLIGRAM DAILY;
     Route: 048
     Dates: start: 20140324, end: 20140401
  2. PLAVIX 75 MG [Suspect]
     Indication: CORONARY ANGIOPLASTY
     Dosage: 75 MILLIGRAM DAILY; RESTARTED ON 11-APR-2014
     Route: 065
     Dates: start: 20140319, end: 20140401
  3. ASPIRIN CARDIO [Suspect]
     Indication: CORONARY ANGIOPLASTY
     Dosage: 100 MILLIGRAM DAILY; CONTINUING
     Route: 065
  4. CONCOR [Concomitant]
     Dosage: 2.5 MILLIGRAM DAILY;
     Route: 065
  5. COVERSUM N COMBI [Concomitant]
     Route: 065
  6. SORTIS [Concomitant]
     Dosage: 40 MILLIGRAM DAILY;
     Route: 065

REACTIONS (5)
  - Gastrointestinal haemorrhage [Recovered/Resolved]
  - Melaena [Recovered/Resolved]
  - Haemorrhagic anaemia [Recovered/Resolved]
  - Post procedural haematoma [Recovered/Resolved]
  - Gastric ulcer [Recovered/Resolved]
